FAERS Safety Report 8625491-1 (Version None)
Quarter: 2012Q3

REPORT INFORMATION
  Report Type: 
  Country: None (occurrence: None)
  Receive Date: 20120827
  Receipt Date: 20120813
  Transmission Date: 20120928
  Serious: Yes (Hospitalization)
  Sender: FDA-Public Use
  Company Number: TR-MYLANLABS-2012S1016721

PATIENT
  Age: 11 Year
  Sex: Male

DRUGS (5)
  1. LOSARTAN POTASSIUM [Concomitant]
     Indication: HYPERTENSION
     Dosage: 1.5MG/KG/DAY
     Route: 065
  2. CAPTOPRIL [Concomitant]
     Indication: HYPERTENSION
     Dosage: 1.5MG/KG/DAY
     Route: 065
  3. METHYLDOPA [Suspect]
     Indication: HYPERTENSION
     Dosage: 25MG/KG/DAY, INCREASED TO 50MG/KG/DAY
     Route: 065
  4. METHYLDOPA [Suspect]
     Dosage: 50MG/KG/DAY
     Route: 065
  5. AMLODIPINE [Concomitant]
     Indication: HYPERTENSION
     Dosage: 1.5MG/KG/DAY
     Route: 065

REACTIONS (3)
  - HYPERTENSION [None]
  - GALACTORRHOEA [None]
  - HYPERPROLACTINAEMIA [None]
